FAERS Safety Report 7137804-0 (Version None)
Quarter: 2010Q4

REPORT INFORMATION
  Report Type: 
  Country: None (occurrence: None)
  Receive Date: 20101206
  Receipt Date: 20101122
  Transmission Date: 20110411
  Serious: Yes (Other)
  Sender: FDA-Public Use
  Company Number: PHHY2010DE30297

PATIENT
  Sex: Male
  Weight: 98 kg

DRUGS (1)
  1. RASILEZ [Suspect]
     Indication: HYPERTENSION
     Dosage: 300 MG
     Route: 048

REACTIONS (3)
  - CHEST PAIN [None]
  - MYALGIA [None]
  - OEDEMA [None]
